FAERS Safety Report 6426473-0 (Version None)
Quarter: 2009Q4

REPORT INFORMATION
  Report Type: 
  Country: None (occurrence: None)
  Receive Date: 20091030
  Receipt Date: 20091026
  Transmission Date: 20100525
  Serious: Yes (Hospitalization, Other)
  Sender: FDA-Public Use
  Company Number: 2009SP031446

PATIENT
  Age: 39 Year
  Sex: Female

DRUGS (3)
  1. CLARITIN [Suspect]
     Indication: RHINITIS ALLERGIC
     Dosage: 1 DF; QD; PO
     Route: 048
     Dates: start: 20081224, end: 20090620
  2. DEPAS (ETIZOLAM) [Suspect]
     Indication: DRUG USE FOR UNKNOWN INDICATION
  3. SYNCL [Concomitant]

REACTIONS (2)
  - HEPATITIS ACUTE [None]
  - JAUNDICE [None]
